FAERS Safety Report 21347618 (Version 1)
Quarter: 2022Q3

REPORT INFORMATION
  Report Type: Spontaneous
  Country: NL (occurrence: NL)
  Receive Date: 20220919
  Receipt Date: 20220919
  Transmission Date: 20221026
  Serious: Yes (Hospitalization, Other)
  Sender: FDA-Public Use
  Company Number: None

PATIENT
  Age: 68 Year
  Sex: Male

DRUGS (6)
  1. FLUCONAZOLE [Suspect]
     Active Substance: FLUCONAZOLE
     Indication: Bladder candidiasis
     Dosage: 200 MG, 1X/DAY
     Dates: start: 20210224, end: 20210323
  2. VESICARE [Concomitant]
     Active Substance: SOLIFENACIN SUCCINATE
     Dosage: UNK
  3. TAMSULOSIN [Concomitant]
     Active Substance: TAMSULOSIN
     Dosage: UNK
  4. METFORMIN HYDROCHLORIDE [Concomitant]
     Active Substance: METFORMIN HYDROCHLORIDE
     Dosage: UNK
  5. INSULIN GLARGINE [Concomitant]
     Active Substance: INSULIN GLARGINE
     Dosage: UNK
  6. GLICLAZIDE [Concomitant]
     Active Substance: GLICLAZIDE
     Dosage: UNK

REACTIONS (6)
  - Tubulointerstitial nephritis [Unknown]
  - Hyperkalaemia [Unknown]
  - Dizziness [Unknown]
  - Nausea [Unknown]
  - Rash [Unknown]
  - Malaise [Unknown]
